FAERS Safety Report 7027550-6 (Version None)
Quarter: 2010Q4

REPORT INFORMATION
  Report Type: 
  Country: None (occurrence: None)
  Receive Date: 20101004
  Receipt Date: 20100923
  Transmission Date: 20110411
  Serious: Yes (Other)
  Sender: FDA-Public Use
  Company Number: PHHO2010IL13469

PATIENT
  Sex: Male
  Weight: 65 kg

DRUGS (2)
  1. ACZ885 ACZ+ [Suspect]
     Indication: JUVENILE ARTHRITIS
     Dosage: CODE NOT BROKEN
     Route: 058
     Dates: start: 20100810
  2. AMOXICILLIN [Suspect]

REACTIONS (17)
  - BLOOD FIBRINOGEN DECREASED [None]
  - BRONCHOPNEUMONIA [None]
  - COUGH [None]
  - HEPATIC NECROSIS [None]
  - HEPATITIS [None]
  - HEPATOMEGALY [None]
  - HISTIOCYTOSIS HAEMATOPHAGIC [None]
  - LEUKOPENIA [None]
  - NEUTROPENIA [None]
  - OROPHARYNGEAL PAIN [None]
  - PRURITUS [None]
  - PYREXIA [None]
  - RASH MACULO-PAPULAR [None]
  - RHINORRHOEA [None]
  - SPLENOMEGALY [None]
  - THROMBOCYTOPENIA [None]
  - UPPER RESPIRATORY TRACT INFECTION [None]
